FAERS Safety Report 6210985-9 (Version None)
Quarter: 2009Q2

REPORT INFORMATION
  Report Type: 
  Country: None (occurrence: None)
  Receive Date: 20090528
  Receipt Date: 20090528
  Transmission Date: 20091009
  Serious: Yes (Other)
  Sender: FDA-Public Use
  Company Number: None

PATIENT
  Sex: Male
  Weight: 29.4838 kg

DRUGS (2)
  1. SINGULAIR [Suspect]
     Indication: BRONCHIAL HYPERREACTIVITY
     Dosage: ONE DAILY PO FALL WINTER SPRING
     Route: 048
     Dates: start: 20071001, end: 20090527
  2. SINGULAIR [Suspect]
     Indication: MULTIPLE ALLERGIES
     Dosage: ONE DAILY PO FALL WINTER SPRING
     Route: 048
     Dates: start: 20071001, end: 20090527

REACTIONS (6)
  - ABNORMAL BEHAVIOUR [None]
  - AGGRESSION [None]
  - EMOTIONAL DISTRESS [None]
  - INSOMNIA [None]
  - SCREAMING [None]
  - SLEEP TERROR [None]
